FAERS Safety Report 7772290-9 (Version None)
Quarter: 2011Q3

REPORT INFORMATION
  Report Type: 
  Country: None (occurrence: None)
  Receive Date: 20110922
  Receipt Date: 20100922
  Transmission Date: 20111222
  Serious: No
  Sender: FDA-Public Use
  Company Number: US-ASTRAZENECA-2010SE44860

PATIENT
  Age: 29 Year
  Sex: Male

DRUGS (3)
  1. LEXAPRO [Concomitant]
  2. XANAX [Concomitant]
  3. SEROQUEL [Suspect]
     Indication: BIPOLAR DISORDER
     Route: 048

REACTIONS (2)
  - MUSCULAR WEAKNESS [None]
  - MUSCLE RIGIDITY [None]
